FAERS Safety Report 10990882 (Version 6)
Quarter: 2016Q2

REPORT INFORMATION
  Report Type: Spontaneous
  Country: US (occurrence: US)
  Receive Date: 20150406
  Receipt Date: 20160419
  Transmission Date: 20160815
  Serious: Yes (Other)
  Sender: FDA-Public Use
  Company Number: US-PFIZER INC-2014113423

PATIENT
  Age: 78 Year
  Sex: Female
  Weight: 74.84 kg

DRUGS (17)
  1. AMBIEN [Concomitant]
     Active Substance: ZOLPIDEM TARTRATE
     Indication: INSOMNIA
     Dosage: 10 MG, DAILY
  2. VITAMIN D3 [Concomitant]
     Active Substance: CHOLECALCIFEROL
     Dosage: 500 IU, 1X/DAY
  3. VITAMIN C [Concomitant]
     Active Substance: ASCORBIC ACID
     Dosage: 1000 IU, DAILY
  4. CENTRUM SILVER [Concomitant]
     Active Substance: MINERALS\VITAMINS
     Dosage: 1 DF, DAILY
  5. VITAMIN E [Concomitant]
     Active Substance: .ALPHA.-TOCOPHEROL
     Dosage: 400 IU, DAILY
  6. CYMBALTA [Concomitant]
     Active Substance: DULOXETINE HYDROCHLORIDE
     Indication: FIBROMYALGIA
  7. ACETYLSALICYLIC ACID LOW DOSE [Concomitant]
     Dosage: UNK
  8. CITRACAL [Concomitant]
     Active Substance: CALCIUM CITRATE
     Dosage: 1 DF, DAILY
  9. PRAVACHOL [Concomitant]
     Active Substance: PRAVASTATIN SODIUM
     Indication: BLOOD CHOLESTEROL INCREASED
  10. TOVIAZ [Concomitant]
     Active Substance: FESOTERODINE FUMARATE
     Indication: INCONTINENCE
     Dosage: 8 MG, 1X/DAY
  11. LYRICA [Suspect]
     Active Substance: PREGABALIN
     Indication: BACK PAIN
     Dosage: 150 MG, 2X/DAY
     Route: 048
     Dates: start: 2010
  12. LYRICA [Suspect]
     Active Substance: PREGABALIN
     Indication: NEURALGIA
  13. CYMBALTA [Concomitant]
     Active Substance: DULOXETINE HYDROCHLORIDE
     Indication: DEPRESSION
     Dosage: 30 MG, 2X/DAY
     Route: 048
  14. LYRICA [Suspect]
     Active Substance: PREGABALIN
     Indication: NERVOUS SYSTEM DISORDER
     Dosage: 150 MG, 2X/DAY
     Route: 048
     Dates: start: 20131004
  15. LOSARTAN. [Concomitant]
     Active Substance: LOSARTAN
     Indication: HYPERTENSION
     Dosage: 50 MG, 2X/DAY
  16. LYRICA [Suspect]
     Active Substance: PREGABALIN
     Indication: FIBROMYALGIA
  17. TOVIAZ [Suspect]
     Active Substance: FESOTERODINE FUMARATE
     Indication: BLADDER DISORDER
     Dosage: 8 MG, 1X/DAY
     Route: 048
     Dates: start: 20131004

REACTIONS (7)
  - Memory impairment [Not Recovered/Not Resolved]
  - Bone contusion [Unknown]
  - Cerebrovascular accident [Recovering/Resolving]
  - Chest injury [Recovered/Resolved]
  - Fall [Recovered/Resolved]
  - Arthropathy [Unknown]
  - Arthropathy [Unknown]

NARRATIVE: CASE EVENT DATE: 20140102
